FAERS Safety Report 8462019-3 (Version None)
Quarter: 2012Q2

REPORT INFORMATION
  Report Type: 
  Country: None (occurrence: None)
  Receive Date: 20120625
  Receipt Date: 20120614
  Transmission Date: 20120825
  Serious: Yes (Hospitalization)
  Sender: FDA-Public Use
  Company Number: CA-ASTRAZENECA-2012SE29399

PATIENT
  Age: 82 Year
  Sex: Male

DRUGS (1)
  1. SYMBICORT [Suspect]
     Indication: CHRONIC OBSTRUCTIVE PULMONARY DISEASE
     Dosage: 200 MCG, FREQUENCY UNKNOWN
     Route: 055
     Dates: start: 20111201, end: 20111201

REACTIONS (4)
  - THROAT IRRITATION [None]
  - SENSATION OF FOREIGN BODY [None]
  - WEIGHT DECREASED [None]
  - BRONCHITIS [None]
